FAERS Safety Report 4974371-1 (Version None)
Quarter: 2006Q2

REPORT INFORMATION
  Report Type: 
  Country: None (occurrence: None)
  Receive Date: 20060417
  Receipt Date: 20060410
  Transmission Date: 20061013
  Serious: Yes (Other)
  Sender: FDA-Public Use
  Company Number: FR-AVENTIS-200611341FR

PATIENT
  Age: 48 Year
  Sex: Male

DRUGS (5)
  1. AMARYL [Suspect]
     Indication: DIABETES MELLITUS
     Route: 048
     Dates: start: 20030101
  2. LANTUS [Suspect]
     Indication: DIABETES MELLITUS
     Route: 058
     Dates: start: 20050101
  3. COAPROVEL [Concomitant]
  4. EUPRESSYL [Concomitant]
  5. DETENSIEL [Concomitant]

REACTIONS (3)
  - HYPOGLYCAEMIA [None]
  - MACULAR OEDEMA [None]
  - VISUAL ACUITY REDUCED [None]
